FAERS Safety Report 5125364-5 (Version None)
Quarter: 2006Q4

REPORT INFORMATION
  Report Type: 
  Country: None (occurrence: None)
  Receive Date: 20061011
  Receipt Date: 20060927
  Transmission Date: 20070319
  Serious: Yes (Death, Hospitalization, Other)
  Sender: FDA-Public Use
  Company Number: PHBS2006JP15025

PATIENT
  Age: 44 Year
  Sex: Female
  Weight: 68 kg

DRUGS (12)
  1. GLEEVEC [Suspect]
     Indication: CHRONIC MYELOID LEUKAEMIA
     Dosage: 400 MG/D
     Route: 048
     Dates: start: 20011203, end: 20040201
  2. GLEEVEC [Suspect]
     Dosage: 600 MG/D
     Route: 048
     Dates: start: 20040201, end: 20050628
  3. GLEEVEC [Suspect]
     Dosage: 800 MG/D
     Route: 048
     Dates: start: 20050628, end: 20051001
  4. GLEEVEC [Suspect]
     Dosage: 400 MG/D
     Route: 048
     Dates: start: 20051001, end: 20060110
  5. GLEEVEC [Suspect]
     Dosage: 200 MG/DAY
     Route: 048
     Dates: start: 20060111
  6. SUMIFERON [Concomitant]
     Indication: CHRONIC MYELOID LEUKAEMIA
     Dosage: 600 IU/DAY
     Route: 058
     Dates: start: 19980507, end: 20011201
  7. HYDREA [Concomitant]
     Indication: CHRONIC MYELOID LEUKAEMIA
     Dosage: 1500 MG/DAY
     Route: 048
     Dates: start: 19980501
  8. HYDREA [Concomitant]
     Dosage: 1000 MG/DAY
     Route: 048
     Dates: end: 20051001
  9. PREDONINE [Concomitant]
     Indication: INTERSTITIAL LUNG DISEASE
     Dosage: 30 MG/DAY
     Route: 048
     Dates: start: 20051007
  10. PREDONINE [Concomitant]
     Dosage: 15 MG/DAY
     Route: 048
  11. PREDONINE [Concomitant]
     Dosage: 30 MG/DAY
     Route: 048
  12. PREDONINE [Concomitant]
     Dosage: 40 MG/DAY
     Route: 048
     Dates: start: 20060111

REACTIONS (16)
  - ABDOMINAL PAIN UPPER [None]
  - ALVEOLAR PROTEINOSIS [None]
  - ARRHYTHMIA [None]
  - ARTHRALGIA [None]
  - C-REACTIVE PROTEIN INCREASED [None]
  - CHRONIC MYELOID LEUKAEMIA [None]
  - DEPRESSED LEVEL OF CONSCIOUSNESS [None]
  - DYSPNOEA [None]
  - HYPERKALAEMIA [None]
  - INFECTION [None]
  - INTERSTITIAL LUNG DISEASE [None]
  - OXYGEN SATURATION DECREASED [None]
  - PYREXIA [None]
  - RENAL FAILURE ACUTE [None]
  - THROMBOCYTHAEMIA [None]
  - URINE OUTPUT DECREASED [None]
